FAERS Safety Report 9634017 (Version 1)
Quarter: 2013Q4

REPORT INFORMATION
  Report Type: Report from Study
  Country: ES (occurrence: ES)
  Receive Date: 20131021
  Receipt Date: 20131021
  Transmission Date: 20140711
  Serious: Yes (Death)
  Sender: FDA-Public Use
  Company Number: ES-009507513-1310ESP008132

PATIENT
  Age: 65 Year
  Sex: Male
  Weight: 90 kg

DRUGS (5)
  1. INTRONA [Suspect]
     Dosage: 20 MI/M2 FIVE DAYS PER WEEK DURING 4 WEEKS, QD
     Route: 042
     Dates: start: 20040525, end: 20040604
  2. INTRONA [Suspect]
     Dosage: 20 MI/M2 FIVE DAYS PER WEEK DURING 4 WEEKS, QD
     Route: 042
     Dates: start: 20040621, end: 20040726
  3. INTRONA [Suspect]
     Dosage: 20 MI/M2 FIVE DAYS PER WEEK DURING 4 WEEKS, QD
     Route: 042
     Dates: start: 20040803, end: 20041105
  4. NAPROXEN [Concomitant]
     Indication: PYREXIA
     Dosage: DAILY DOSE 500 MG
     Route: 048
     Dates: start: 20040621, end: 20040726
  5. NAPROXEN [Concomitant]
     Indication: PAIN

REACTIONS (12)
  - Neoplasm progression [Fatal]
  - Neutrophil count decreased [Recovered/Resolved]
  - Fatigue [Not Recovered/Not Resolved]
  - Vomiting [Recovered/Resolved]
  - Nausea [Recovered/Resolved]
  - Fatigue [Not Recovered/Not Resolved]
  - White blood cell count decreased [Recovered/Resolved]
  - Neutrophil count decreased [Recovered/Resolved]
  - Malaise [Recovered/Resolved]
  - Fatigue [Not Recovered/Not Resolved]
  - Decreased appetite [Not Recovered/Not Resolved]
  - Weight decreased [Recovered/Resolved]
